FAERS Safety Report 8851862 (Version 1)
Quarter: 2012Q4

REPORT INFORMATION
  Report Type: Spontaneous
  Country: DE (occurrence: None)
  Receive Date: 20121017
  Receipt Date: 20121017
  Transmission Date: 20130627
  Serious: Yes (Other)
  Sender: FDA-Public Use
  Company Number: GER/GER/12/0026121

PATIENT
  Age: 46 Year
  Sex: Female
  Weight: 50 kg

DRUGS (2)
  1. CIPROFLOXACIN [Suspect]
     Indication: DRUG USE FOR UNKNOWN INDICATION
     Dosage: 1 in 1 Total
     Route: 048
     Dates: start: 20121004
  2. PROMETHAZINE [Suspect]
     Indication: DRUG USE FOR UNKNOWN INDICATION
     Dosage: 1 in 1 Total
     Route: 048
     Dates: start: 20121004

REACTIONS (4)
  - Intentional overdose [None]
  - Suicide attempt [None]
  - Somnolence [None]
  - Dyskinesia [None]
